FAERS Safety Report 8397755-0 (Version None)
Quarter: 2012Q2

REPORT INFORMATION
  Report Type: 
  Country: None (occurrence: None)
  Receive Date: 20120323
  Receipt Date: 20110302
  Transmission Date: 20120825
  Serious: Yes (Hospitalization, Other)
  Sender: FDA-Public Use
  Company Number: 163-21880-11011659

PATIENT
  Age: 67 Year
  Sex: Male

DRUGS (15)
  1. PREDNISONE TAB [Concomitant]
  2. PLATELETS (PLATELETS) [Concomitant]
  3. LOMOTIL [Concomitant]
  4. PROTONIX [Concomitant]
  5. TACROLIMUS [Concomitant]
  6. WARFARIN SODIUM [Concomitant]
  7. COUMADIN [Concomitant]
  8. GLUCOSAMINE (GLUCOSAMINE) [Concomitant]
  9. REVLIMID [Suspect]
     Indication: MYELODYSPLASTIC SYNDROME
     Dosage: 2.5 MG, QOD, PO 5 MG, EVERY OTHER DAY, PO
     Route: 048
     Dates: start: 20110124
  10. REVLIMID [Suspect]
     Indication: MYELODYSPLASTIC SYNDROME
     Dosage: 2.5 MG, QOD, PO 5 MG, EVERY OTHER DAY, PO
     Route: 048
     Dates: start: 20101201, end: 20110112
  11. HYDROCODONE AND ACETAMINOPHEN (VICODIN) [Concomitant]
  12. SOMA [Concomitant]
  13. ALLOPURINOL [Concomitant]
  14. COLCHICINE [Concomitant]
  15. PROGRAF [Concomitant]

REACTIONS (2)
  - PNEUMONIA [None]
  - PLATELET COUNT DECREASED [None]
